FAERS Safety Report 15386974 (Version 2)
Quarter: 2018Q4

REPORT INFORMATION
  Report Type: Spontaneous
  Country: US (occurrence: US)
  Receive Date: 20180914
  Receipt Date: 20181130
  Transmission Date: 20190204
  Serious: No
  Sender: FDA-Public Use
  Company Number: PHHY2018US096479

PATIENT
  Sex: Female

DRUGS (1)
  1. ICAPS LZ [Suspect]
     Active Substance: VITAMINS
     Indication: PRODUCT USED FOR UNKNOWN INDICATION
     Route: 065

REACTIONS (3)
  - Product formulation issue [Unknown]
  - Diarrhoea [Recovered/Resolved]
  - Muscle spasms [Recovered/Resolved]
